FAERS Safety Report 11292787 (Version 1)
Quarter: 2015Q2

REPORT INFORMATION
  Report Type: Spontaneous
  Country: US (occurrence: None)
  Receive Date: 20150623
  Receipt Date: 20150623
  Transmission Date: 20150821
  Serious: Yes (Other)
  Sender: FDA-Public Use
  Company Number: RB-69153-2014

PATIENT
  Age: 68 Year
  Sex: Female

DRUGS (1)
  1. GUAIFENESIN/DEXTROMETHORPHAN 1200 MG (RB RECKITT BENCKISER)) [Suspect]
     Active Substance: DEXTROMETHORPHAN\GUAIFENESIN
     Indication: PRODUCT USED FOR UNKNOWN INDICATION
     Dosage: (1200 MG QD, TOOK ONLY 1 TABLET (ON SUNDAY 21-SEP-2014 AT ABOUT 8PM) UNKNOWN)
     Dates: start: 20140921

REACTIONS (3)
  - Swollen tongue [None]
  - Dysphagia [None]
  - Dyspnoea [None]

NARRATIVE: CASE EVENT DATE: 20140921
